FAERS Safety Report 13150667 (Version 4)
Quarter: 2017Q2

REPORT INFORMATION
  Report Type: Spontaneous
  Country: US (occurrence: US)
  Receive Date: 20170125
  Receipt Date: 20170420
  Transmission Date: 20170830
  Serious: No
  Sender: FDA-Public Use
  Company Number: US-GLAXOSMITHKLINE-US2017009441

PATIENT
  Sex: Female

DRUGS (3)
  1. IMITREX [Suspect]
     Active Substance: SUMATRIPTAN SUCCINATE
     Indication: PRODUCT USED FOR UNKNOWN INDICATION
     Dosage: 6 MG, PRN
     Route: 042
  2. IMITREX [Suspect]
     Active Substance: SUMATRIPTAN SUCCINATE
     Dosage: UNK
  3. IMITREX [Suspect]
     Active Substance: SUMATRIPTAN SUCCINATE
     Dosage: UNK

REACTIONS (2)
  - Drug dose omission [Unknown]
  - Product quality issue [Unknown]
